FAERS Safety Report 7810299-7 (Version None)
Quarter: 2011Q4

REPORT INFORMATION
  Report Type: 
  Country: None (occurrence: None)
  Receive Date: 20111012
  Receipt Date: 20110930
  Transmission Date: 20120403
  Serious: Yes (Hospitalization)
  Sender: FDA-Public Use
  Company Number: GB-ROCHE-802189

PATIENT
  Sex: Male
  Weight: 87.8 kg

DRUGS (5)
  1. VEMURAFENIB [Suspect]
     Route: 048
  2. IBUPROFEN [Concomitant]
  3. VEMURAFENIB [Suspect]
     Indication: METASTATIC MALIGNANT MELANOMA
     Dosage: DATE OF LAST DOSE PRIOR TO SAE:11 SEP 2011.
     Route: 048
     Dates: start: 20110711, end: 20110911
  4. ACETAMINOPHEN [Concomitant]
  5. ORAMORPH SR [Concomitant]

REACTIONS (1)
  - LOWER RESPIRATORY TRACT INFECTION [None]
